FAERS Safety Report 4427841-9 (Version None)
Quarter: 2004Q3

REPORT INFORMATION
  Report Type: 
  Country: None (occurrence: None)
  Receive Date: 20040817
  Receipt Date: 20040809
  Transmission Date: 20050211
  Serious: Yes (Hospitalization)
  Sender: FDA-Public Use
  Company Number: DK-BRISTOL-MYERS SQUIBB COMPANY-12664801

PATIENT
  Age: 61 Year
  Sex: Male
  Weight: 86 kg

DRUGS (7)
  1. CISPLATIN [Suspect]
     Indication: BLADDER CANCER
     Dosage: 1ST DOSE: 23APR04 TOTAL DOSE: 560 MG
     Dates: start: 20040715, end: 20040715
  2. GEMCITABINE [Suspect]
     Indication: BLADDER CANCER
     Dosage: 1ST DOSE: 22APR04 TOTAL DOSE: 18000 MG
     Dates: start: 20040728, end: 20040728
  3. ZOLOFT [Concomitant]
  4. CELECOXIB [Concomitant]
  5. COLESTYRAMINE [Concomitant]
  6. LANSOPRAZOLE [Concomitant]
  7. GUTRON [Concomitant]
     Dates: start: 20040722

REACTIONS (2)
  - HICCUPS [None]
  - PYREXIA [None]
